FAERS Safety Report 6795676-8 (Version None)
Quarter: 2010Q2

REPORT INFORMATION
  Report Type: 
  Country: None (occurrence: None)
  Receive Date: 20100625
  Receipt Date: 20100614
  Transmission Date: 20101027
  Serious: Yes (Other)
  Sender: FDA-Public Use
  Company Number: FR-ELI_LILLY_AND_COMPANY-FR201006003551

PATIENT
  Sex: Male
  Weight: 75 kg

DRUGS (7)
  1. CIALIS [Suspect]
     Indication: ERECTILE DYSFUNCTION
     Dosage: 20 MG, AS NEEDED (EACH THREE WEEKS)
     Route: 048
     Dates: start: 20061001, end: 20081208
  2. PANFUREX [Concomitant]
     Indication: DIARRHOEA
     Dosage: 200 MG, UNKNOWN
     Route: 048
     Dates: start: 20010101
  3. ARICEPT [Concomitant]
     Indication: DEMENTIA ALZHEIMER'S TYPE
     Dosage: 10 MG, DAILY (1/D)
     Route: 048
     Dates: start: 20060103
  4. LEVOTHYROXINE SODIUM [Concomitant]
     Indication: HYPOTHYROIDISM
     Dosage: 100 UG, DAILY (1/D)
     Route: 048
     Dates: start: 20020101
  5. EUPNOL [Concomitant]
     Indication: GASTROOESOPHAGEAL REFLUX DISEASE
     Dosage: 20 MG, DAILY (1/D)
     Route: 048
     Dates: start: 20061101
  6. AVANDIA [Concomitant]
     Indication: DEMENTIA ALZHEIMER'S TYPE
     Dosage: 4 MG, DAILY (1/D)
     Route: 048
     Dates: end: 20080422
  7. AVANDIA [Concomitant]
     Dosage: 8 MG, DAILY (1/D)
     Route: 048
     Dates: start: 20080422

REACTIONS (1)
  - OPTIC NEURITIS [None]
